FAERS Safety Report 13960656 (Version 1)
Quarter: 2017Q3

REPORT INFORMATION
  Report Type: Spontaneous
  Country: US (occurrence: US)
  Receive Date: 20170912
  Receipt Date: 20170912
  Transmission Date: 20171128
  Serious: No
  Sender: FDA-Public Use
  Company Number: US-ALLERGAN-1709508US

PATIENT
  Sex: Female
  Weight: 61.23 kg

DRUGS (6)
  1. ALPRAZOLAM. [Concomitant]
     Active Substance: ALPRAZOLAM
     Indication: ANXIETY
     Dosage: 2 MG, PRN
     Route: 065
  2. COUMADIN [Concomitant]
     Active Substance: WARFARIN SODIUM
     Dosage: 4 MG, REST OF THE WEEK
  3. CLONAZEPAM. [Concomitant]
     Active Substance: CLONAZEPAM
     Indication: SLEEP TERROR
     Dosage: 1 MG, BID
     Route: 065
     Dates: start: 2010
  4. LEVOTHYROXINE. [Concomitant]
     Active Substance: LEVOTHYROXINE
     Indication: THYROID DISORDER
     Dosage: 125 ?G, QD
     Route: 065
     Dates: start: 1992
  5. COUMADIN [Concomitant]
     Active Substance: WARFARIN SODIUM
     Indication: ATRIAL FIBRILLATION
     Dosage: 6 MG, BI-WEEKLY
     Route: 065
     Dates: start: 2007
  6. ESCITALOPRAM OXALATE - BP [Suspect]
     Active Substance: ESCITALOPRAM OXALATE
     Indication: DEPRESSION
     Dosage: 20 MG, QD
     Route: 065
     Dates: start: 2010

REACTIONS (1)
  - Drug ineffective [Unknown]
